FAERS Safety Report 8185079-6 (Version None)
Quarter: 2012Q1

REPORT INFORMATION
  Report Type: 
  Country: None (occurrence: None)
  Receive Date: 20120305
  Receipt Date: 20120227
  Transmission Date: 20120608
  Serious: Yes (Death, Hospitalization, Other)
  Sender: FDA-Public Use
  Company Number: US-TEVA-325042USA

PATIENT
  Age: 20 Year
  Sex: Male

DRUGS (4)
  1. PLAQUENIL [Concomitant]
     Indication: SYSTEMIC LUPUS ERYTHEMATOSUS
     Dosage: 500MG DAILY
     Route: 065
  2. METHYLPREDNISOLONE [Suspect]
     Indication: SYSTEMIC LUPUS ERYTHEMATOSUS
     Dosage: 1000MG DAILY
     Route: 042
  3. PREDNISONE TAB [Suspect]
     Indication: SYSTEMIC LUPUS ERYTHEMATOSUS
     Route: 048
  4. HYDROXYCHLOROQUINE SULFATE [Suspect]
     Dosage: STRESS DOSE LEVELS
     Route: 042

REACTIONS (9)
  - NEUROLOGICAL DECOMPENSATION [None]
  - PARESIS [None]
  - COUGH [None]
  - ADENOVIRUS INFECTION [None]
  - HYPOXIA [None]
  - TACHYPNOEA [None]
  - RHINOVIRUS INFECTION [None]
  - CHEST PAIN [None]
  - HAEMOPTYSIS [None]
